FAERS Safety Report 8285987-1 (Version None)
Quarter: 2012Q2

REPORT INFORMATION
  Report Type: 
  Country: None (occurrence: None)
  Receive Date: 20120416
  Receipt Date: 20120402
  Transmission Date: 20120825
  Serious: Yes (Other)
  Sender: FDA-Public Use
  Company Number: DE-AMGEN-DEUSP2012012490

PATIENT
  Age: 55 Year
  Sex: Male
  Weight: 80 kg

DRUGS (5)
  1. ENBREL [Suspect]
     Indication: PRODUCT USED FOR UNKNOWN INDICATION
     Dosage: 25 MG, 2X/WEEK
     Route: 058
     Dates: start: 20010305
  2. METHOTREXATE [Concomitant]
     Dosage: 15 MG, WEEKLY
     Dates: start: 19980101
  3. PREDNISONE TAB [Concomitant]
     Dosage: 10 MG, UNK
  4. CORTISONE ACETATE [Concomitant]
     Dosage: UNK
  5. DICLOFENAC SODIUM [Concomitant]
     Dosage: 75 MG, 2X1 PRO DAY

REACTIONS (2)
  - CHRONIC MYELOID LEUKAEMIA [None]
  - MYELOPROLIFERATIVE DISORDER [None]
